FAERS Safety Report 19997299 (Version 1)
Quarter: 2021Q4

REPORT INFORMATION
  Report Type: Spontaneous
  Country: AR (occurrence: AR)
  Receive Date: 20211026
  Receipt Date: 20211026
  Transmission Date: 20220303
  Serious: Yes (Hospitalization)
  Sender: FDA-Public Use
  Company Number: AR-NOVARTISPH-NVSC2021AR238002

PATIENT
  Sex: Female

DRUGS (4)
  1. CALCIUM [Suspect]
     Active Substance: CALCIUM
     Indication: Autoimmune thyroiditis
     Dosage: 2 DF, QD
     Route: 065
     Dates: start: 2000, end: 2003
  2. CALCIUM [Suspect]
     Active Substance: CALCIUM
     Dosage: 2 DF, QD (STOPPED 1 WEEK AND A HALF AGO)
     Route: 065
     Dates: start: 2003, end: 2021
  3. VITAMIN D3 [Concomitant]
     Active Substance: CHOLECALCIFEROL
     Indication: Product used for unknown indication
     Dosage: UNK, USED TO SET THE CALCIUM
     Route: 065
  4. LEVOTHYROXINE [Concomitant]
     Active Substance: LEVOTHYROXINE
     Indication: Product used for unknown indication
     Dosage: UNK, USED TO SET THE CALCIUM
     Route: 065

REACTIONS (5)
  - Tetany [Not Recovered/Not Resolved]
  - Malaise [Not Recovered/Not Resolved]
  - Paraesthesia [Unknown]
  - Parathyroid disorder [Unknown]
  - Product supply issue [Unknown]

NARRATIVE: CASE EVENT DATE: 20000101
